FAERS Safety Report 8819821 (Version 2)
Quarter: 2012Q4

REPORT INFORMATION
  Report Type: 
  Country: DE (occurrence: DE)
  Receive Date: 20121001
  Receipt Date: 20121008
  Transmission Date: 20130627
  Serious: Yes (Other)
  Sender: FDA-Public Use
  Company Number: DE-PFIZER INC-2012241076

PATIENT
  Sex: Female
  Weight: 73 kg

DRUGS (3)
  1. ATORVASTATIN CALCIUM [Suspect]
     Indication: HYPERCHOLESTEROLAEMIA
     Dosage: 10 mg, UNK
     Route: 048
     Dates: start: 20120316, end: 20120525
  2. EZETROL [Suspect]
     Indication: HYPERCHOLESTEROLAEMIA
     Dosage: 10 mg, UNK
     Route: 048
     Dates: start: 20081024, end: 20090130
  3. TREDAPTIVE [Suspect]
     Indication: HYPERCHOLESTEROLAEMIA
     Dosage: laropiprant 20 mg/nicotinic acid 1000 mg
     Route: 048
     Dates: start: 20091009, end: 20091204

REACTIONS (3)
  - Drug intolerance [Recovered/Resolved]
  - Myalgia [Recovered/Resolved]
  - Muscular weakness [Recovered/Resolved]
